APPROVED DRUG PRODUCT: DIVALPROEX SODIUM
Active Ingredient: DIVALPROEX SODIUM
Strength: EQ 250MG VALPROIC ACID
Dosage Form/Route: TABLET, DELAYED RELEASE;ORAL
Application: A079163 | Product #002 | TE Code: AB
Applicant: UNICHEM LABORATORIES LIMITED
Approved: Apr 5, 2011 | RLD: No | RS: No | Type: RX